FAERS Safety Report 10685181 (Version 7)
Quarter: 2017Q1

REPORT INFORMATION
  Report Type: Spontaneous
  Country: US (occurrence: US)
  Receive Date: 20141231
  Receipt Date: 20170322
  Transmission Date: 20170428
  Serious: Yes (Other)
  Sender: FDA-Public Use
  Company Number: US-PFIZER INC-2014357524

PATIENT
  Age: 78 Year
  Sex: Female
  Weight: 39 kg

DRUGS (21)
  1. CITRACAL + D [Concomitant]
     Active Substance: CALCIUM CITRATE\VITAMIN D
     Dosage: UNK
     Route: 048
     Dates: start: 20111219
  2. FOLIC ACID. [Concomitant]
     Active Substance: FOLIC ACID
     Dosage: 1 MG, UNK
     Route: 048
     Dates: start: 20110615
  3. KLOR-CON [Concomitant]
     Active Substance: POTASSIUM CHLORIDE
     Dosage: 25 MEQ, UNK
     Route: 048
     Dates: start: 20111028
  4. REVATIO [Suspect]
     Active Substance: SILDENAFIL CITRATE
     Indication: PULMONARY ARTERIAL HYPERTENSION
     Dosage: 20 MG, 3X/DAY (EVERY 8 HR)
     Route: 048
  5. ASPIRIN. [Concomitant]
     Active Substance: ASPIRIN
     Dosage: 81 MG, DAILY
     Route: 048
     Dates: start: 20121206
  6. LIDOCAINE HCL [Concomitant]
     Active Substance: LIDOCAINE HYDROCHLORIDE
     Dosage: UNK (2% EXTERNAL GEL)
     Dates: start: 20120116
  7. CLOBETASOL PROPIONATE E [Concomitant]
     Dosage: 0.05 %, 2X/DAY (APPLY TWICE A DAY FOR UP TO TWO WEEKS)
     Dates: start: 20160811
  8. FLONASE [Concomitant]
     Active Substance: FLUTICASONE PROPIONATE
     Indication: HYPERSENSITIVITY
     Dosage: 50 UG, UNK
  9. AMLACTIN [Concomitant]
     Active Substance: AMMONIUM LACTATE
     Dosage: UNK
     Dates: start: 20141113
  10. CLONAZEPAM. [Concomitant]
     Active Substance: CLONAZEPAM
     Dosage: 0.25 MG, UNK
     Route: 048
     Dates: start: 20141113
  11. CALCITONIN [Concomitant]
     Active Substance: CALCITONIN
     Dosage: UNK (200 UNIT/ACT)
     Route: 045
     Dates: start: 20111028
  12. METHOTREXATE. [Concomitant]
     Active Substance: METHOTREXATE
     Dosage: 7.5 MG, WEEKLY (3X2.5MG TABLETS WEEKLY)
     Route: 048
     Dates: start: 20110615
  13. SPIRONOLACTONE. [Concomitant]
     Active Substance: SPIRONOLACTONE
     Dosage: 50 MG, UNK
     Route: 048
     Dates: start: 20141113
  14. SYMBICORT [Concomitant]
     Active Substance: BUDESONIDE\FORMOTEROL FUMARATE DIHYDRATE
     Indication: HYPERSENSITIVITY
     Dosage: 2 PUFFS TWICE DAILY RINSE MOUTH AFTER USE
     Route: 055
     Dates: start: 20141013
  15. VITAMIN D [Concomitant]
     Active Substance: CHOLECALCIFEROL
     Dosage: 400 IU, UNK
     Dates: start: 20111219
  16. DILTIAZEM HCL [Concomitant]
     Active Substance: DILTIAZEM HYDROCHLORIDE
     Dosage: 180 MG, 1X/DAY
     Route: 048
     Dates: start: 20110615
  17. PROAIR HFA [Concomitant]
     Active Substance: ALBUTEROL SULFATE
     Dosage: 2 PUFFS EVERY 4 TO 6 HRS, AS NEEDED
     Route: 055
     Dates: start: 20130822
  18. DILTIAZEM HCL [Concomitant]
     Active Substance: DILTIAZEM HYDROCHLORIDE
     Dosage: 60 MG, 2X/DAY
     Route: 048
     Dates: start: 20141113
  19. VITAMIN E [Concomitant]
     Active Substance: .ALPHA.-TOCOPHEROL
     Dosage: 400 IU, UNK
     Route: 048
     Dates: start: 20111219
  20. VOLTAREN [Concomitant]
     Active Substance: DICLOFENAC SODIUM
     Dosage: UNK
     Dates: start: 20160503
  21. QVAR [Concomitant]
     Active Substance: BECLOMETHASONE DIPROPIONATE
     Dosage: INHALE 2 PUFFS TWICE DAILY; RINSE MOUTH AFTER USE
     Route: 055
     Dates: start: 20150724

REACTIONS (11)
  - Haemoptysis [Unknown]
  - Nasopharyngitis [Unknown]
  - Sneezing [Unknown]
  - Pain in jaw [Not Recovered/Not Resolved]
  - Sputum discoloured [Unknown]
  - Rhinorrhoea [Unknown]
  - Dyspnoea [Unknown]
  - Oral pain [Unknown]
  - Osteoarthritis [Unknown]
  - Cough [Unknown]
  - Condition aggravated [Unknown]
